FAERS Safety Report 6366660-3 (Version None)
Quarter: 2009Q3

REPORT INFORMATION
  Report Type: 
  Country: None (occurrence: None)
  Receive Date: 20090921
  Receipt Date: 20090908
  Transmission Date: 20100115
  Serious: Yes (Other)
  Sender: FDA-Public Use
  Company Number: CA-ELI_LILLY_AND_COMPANY-CA200909002030

PATIENT
  Age: 77 Year
  Sex: Female

DRUGS (14)
  1. FORTEO [Suspect]
     Indication: OSTEOPOROSIS
     Dosage: 20 UG, DAILY (1/D)
     Route: 058
     Dates: start: 20081219
  2. SYMBICORT [Concomitant]
  3. SPIRIVA [Concomitant]
  4. RAMIPRIL [Concomitant]
  5. SINGULAIR [Concomitant]
  6. DIMETANE [Concomitant]
  7. CRESTOR [Concomitant]
  8. ATIVAN [Concomitant]
  9. SOFLAX [Concomitant]
  10. CICLESONIDE [Concomitant]
  11. NEXIUM [Concomitant]
  12. GAVISCON                                /GFR/ [Concomitant]
  13. VITAMIN D [Concomitant]
  14. TYLENOL (CAPLET) [Concomitant]
     Dosage: UNK, AS NEEDED

REACTIONS (1)
  - BREAST CANCER [None]
